FAERS Safety Report 5093221-9 (Version None)
Quarter: 2006Q3

REPORT INFORMATION
  Report Type: 
  Country: None (occurrence: None)
  Receive Date: 20060828
  Receipt Date: 20060814
  Transmission Date: 20061208
  Serious: Yes (Life-Threatening, Hospitalization)
  Sender: FDA-Public Use
  Company Number: 227708

PATIENT
  Age: 69 Year
  Sex: Female
  Weight: 67.1 kg

DRUGS (6)
  1. AVASTIN [Suspect]
     Indication: BREAST CANCER METASTATIC
     Dosage: 1043 MG, Q3W, INTRAVENOUS
     Route: 042
     Dates: start: 20060117, end: 20060613
  2. CAPECITABINE (CAPECITABINE) [Suspect]
     Indication: BREAST CANCER METASTATIC
     Dosage: 3500 MG, Q3W, ORAL
     Route: 048
     Dates: start: 20060117, end: 20060627
  3. ISOSORBIDE DINITRATE [Concomitant]
  4. METOPROLOL TARTRATE [Concomitant]
  5. ZOCOR [Concomitant]
  6. WARFARIN SODIUM [Concomitant]

REACTIONS (10)
  - BACK PAIN [None]
  - GAIT DISTURBANCE [None]
  - INFECTION [None]
  - MENTAL STATUS CHANGES [None]
  - MOVEMENT DISORDER [None]
  - NECK PAIN [None]
  - NEUTROPHIL PERCENTAGE INCREASED [None]
  - PAIN [None]
  - PERIANAL ABSCESS [None]
  - WHITE BLOOD CELLS URINE POSITIVE [None]
